FAERS Safety Report 5912856-1 (Version None)
Quarter: 2008Q4

REPORT INFORMATION
  Report Type: 
  Country: None (occurrence: None)
  Receive Date: 20081003
  Receipt Date: 20080923
  Transmission Date: 20090506
  Serious: Yes (Other)
  Sender: FDA-Public Use
  Company Number: B0539585A

PATIENT
  Age: 40 Year
  Sex: Male

DRUGS (2)
  1. CHLORPROMAZINE HYDROCHLORIDE [Suspect]
     Indication: MENTAL RETARDATION
  2. FLUVOXAMINE MALEATE [Suspect]
     Indication: MENTAL RETARDATION

REACTIONS (13)
  - AGITATION [None]
  - HAEMODIALYSIS [None]
  - HYPERHIDROSIS [None]
  - HYPERKALAEMIA [None]
  - LEUKOCYTOSIS [None]
  - LOSS OF CONSCIOUSNESS [None]
  - METABOLIC ACIDOSIS [None]
  - PYREXIA [None]
  - RENAL FAILURE ACUTE [None]
  - RENAL TUBULAR NECROSIS [None]
  - RHABDOMYOLYSIS [None]
  - SEROTONIN SYNDROME [None]
  - TREMOR [None]
